FAERS Safety Report 8386379-7 (Version None)
Quarter: 2012Q2

REPORT INFORMATION
  Report Type: 
  Country: None (occurrence: None)
  Receive Date: 20120525
  Receipt Date: 20120522
  Transmission Date: 20120825
  Serious: Yes (Other)
  Sender: FDA-Public Use
  Company Number: US-BAYER-2012-041964

PATIENT
  Age: 66 Year
  Sex: Female

DRUGS (3)
  1. NEXAVAR [Suspect]
     Indication: RENAL CELL CARCINOMA
     Dosage: 400 MG, BID
     Dates: start: 20120417
  2. METFORMIN HCL [Concomitant]
     Indication: DIABETES MELLITUS
     Route: 048
  3. COUMADIN [Concomitant]
     Indication: ATRIAL FIBRILLATION
     Route: 048

REACTIONS (9)
  - DIARRHOEA [None]
  - ALOPECIA [None]
  - DERMATITIS BULLOUS [None]
  - BLOOD URINE PRESENT [None]
  - ABDOMINAL PAIN [None]
  - FLATULENCE [None]
  - RASH [None]
  - SKIN EXFOLIATION [None]
  - ABDOMINAL DISCOMFORT [None]
